FAERS Safety Report 7994311-0 (Version None)
Quarter: 2011Q4

REPORT INFORMATION
  Report Type: 
  Country: None (occurrence: None)
  Receive Date: 20111220
  Receipt Date: 20111216
  Transmission Date: 20120403
  Serious: Yes (Other)
  Sender: FDA-Public Use
  Company Number: CA-SANOFI-AVENTIS-2011SA080616

PATIENT
  Age: 42 Year
  Sex: Male
  Weight: 86.2 kg

DRUGS (28)
  1. LOVENOX [Suspect]
     Route: 058
     Dates: start: 20070420
  2. PROGRAF [Concomitant]
     Route: 065
     Dates: start: 20091001
  3. GABAPENTIN [Concomitant]
     Route: 065
  4. GABAPENTIN [Concomitant]
     Indication: BACK PAIN
     Route: 065
  5. FOLIC ACID [Concomitant]
     Route: 065
  6. FUSIDIC ACID [Concomitant]
     Route: 061
  7. SOTALOL HCL [Concomitant]
     Route: 065
  8. CLONAZEPAM [Concomitant]
     Route: 065
  9. ATORVASTATIN [Concomitant]
     Route: 065
  10. PREDNISONE [Suspect]
     Route: 065
     Dates: start: 20090101
  11. EPOGEN [Concomitant]
     Dosage: 8000U EVERY TWO WEEKS
     Route: 065
  12. SENNA [Concomitant]
  13. TYLENOL W/ CODEINE NO. 3 [Concomitant]
  14. SEPTRA [Concomitant]
     Indication: INFECTION PROPHYLAXIS
     Dosage: 400MG/80MG MONDAY WENESDAY FRIDAY
  15. VITAMIN D [Concomitant]
     Dosage: DOSE:1000 UNIT(S)
     Route: 065
  16. FOSAMAX [Concomitant]
     Route: 065
     Dates: end: 20091001
  17. DOCUSATE [Concomitant]
  18. MYCOPHENOLATE MOFETIL (CELLCEPT) [Concomitant]
     Route: 065
  19. PANTOPRAZOLE [Concomitant]
     Route: 065
  20. CALCIUM [Concomitant]
     Route: 065
  21. SEROQUEL [Concomitant]
  22. VITAMIN B6 [Concomitant]
     Route: 065
  23. VITAMIN C [Concomitant]
     Route: 065
  24. MULTI-VITAMINS [Concomitant]
     Route: 065
  25. FOSAMAX [Concomitant]
     Route: 065
     Dates: start: 20091001
  26. BISOPROLOL FUMARATE [Concomitant]
     Route: 065
  27. GLICLAZIDE [Concomitant]
     Route: 065
  28. VITAMIN B-12 [Concomitant]
     Route: 065

REACTIONS (4)
  - CALCINOSIS [None]
  - DEVICE DEPOSIT ISSUE [None]
  - BONE LOSS [None]
  - ARTHRALGIA [None]
